FAERS Safety Report 17719673 (Version 2)
Quarter: 2020Q2

REPORT INFORMATION
  Report Type: Spontaneous
  Country: BR (occurrence: BR)
  Receive Date: 20200428
  Receipt Date: 20200504
  Transmission Date: 20200714
  Serious: Yes (Other)
  Sender: FDA-Public Use
  Company Number: NVSC2020BR111439

PATIENT
  Age: 62 Year
  Sex: Female
  Weight: 52 kg

DRUGS (6)
  1. LEVOTHYROXINE. [Concomitant]
     Active Substance: LEVOTHYROXINE
     Indication: THYROID DISORDER
     Dosage: 25 MG, QD (STARTED 3 YEARS AGO)
     Route: 048
  2. PATANOL S [Suspect]
     Active Substance: OLOPATADINE HYDROCHLORIDE
     Indication: EYE DISORDER
     Dosage: FLASK SOLUTION WITH 2.5 ML, QD (1 DROP ONCE A DAY IN BOTH EYES) STARTED 4 YEARS AGO
     Route: 047
  3. HYABAK [Concomitant]
     Active Substance: HYALURONATE SODIUM
     Indication: PRODUCT USED FOR UNKNOWN INDICATION
     Dosage: 0.15 % (1 DROP IN EACH EYE SEVERAL TIMES A DAY) STARTED 4 YEARS AGO
     Route: 047
  4. ANCORON [Concomitant]
     Active Substance: AMIODARONE HYDROCHLORIDE
     Indication: CARDIAC DISORDER
     Dosage: 0.5 DF, Q3W (STARTED 8 YEARS AGO)
     Route: 048
  5. AAS [Concomitant]
     Active Substance: ASPIRIN
     Indication: CARDIAC DISORDER
     Dosage: STARTED 8 YEARS AGO
     Route: 048
  6. PATANOL S [Suspect]
     Active Substance: OLOPATADINE HYDROCHLORIDE
     Indication: CATARACT
     Dosage: UNK
     Route: 065

REACTIONS (2)
  - Cataract [Not Recovered/Not Resolved]
  - Visual impairment [Unknown]

NARRATIVE: CASE EVENT DATE: 20200420
